FAERS Safety Report 7441632-6 (Version None)
Quarter: 2011Q2

REPORT INFORMATION
  Report Type: 
  Country: None (occurrence: None)
  Receive Date: 20110419
  Receipt Date: 20110411
  Transmission Date: 20111010
  Serious: Yes (Hospitalization, Disabling, Other)
  Sender: FDA-Public Use
  Company Number: 2011SP000367

PATIENT
  Age: 26 Year
  Sex: Female

DRUGS (1)
  1. NUVARING [Suspect]
     Indication: CONTRACEPTION
     Dates: start: 20080101, end: 20090105

REACTIONS (36)
  - BLOOD URINE PRESENT [None]
  - INTERNATIONAL NORMALISED RATIO DECREASED [None]
  - PREGNANCY [None]
  - DRUG EXPOSURE BEFORE PREGNANCY [None]
  - TRICUSPID VALVE INCOMPETENCE [None]
  - HAEMATURIA [None]
  - CARBOHYDRATE ANTIGEN 125 INCREASED [None]
  - COUGH [None]
  - HYPOAESTHESIA [None]
  - NEPHROLITHIASIS [None]
  - MUSCULOSKELETAL CHEST PAIN [None]
  - PULMONARY EMBOLISM [None]
  - MIGRAINE [None]
  - RESPIRATORY ARREST [None]
  - MOOD SWINGS [None]
  - DILATATION VENTRICULAR [None]
  - PULMONARY FIBROSIS [None]
  - PLEURITIC PAIN [None]
  - VISUAL IMPAIRMENT [None]
  - RIGHT ATRIAL DILATATION [None]
  - SPINAL OSTEOARTHRITIS [None]
  - WEIGHT DECREASED [None]
  - HYPERCOAGULATION [None]
  - DRUG HYPERSENSITIVITY [None]
  - LOSS OF EMPLOYMENT [None]
  - SYNCOPE [None]
  - HEADACHE [None]
  - INSOMNIA [None]
  - CERVICAL DYSPLASIA [None]
  - CONFUSIONAL STATE [None]
  - DEEP VEIN THROMBOSIS [None]
  - FACIAL PARESIS [None]
  - PARAESTHESIA [None]
  - NAUSEA [None]
  - ADNEXA UTERI CYST [None]
  - ATTENTION DEFICIT/HYPERACTIVITY DISORDER [None]
